FAERS Safety Report 9906671 (Version 2)
Quarter: 2014Q1

REPORT INFORMATION
  Report Type: Report from Study
  Country: US (occurrence: US)
  Receive Date: 20140218
  Receipt Date: 20140226
  Transmission Date: 20141002
  Serious: Yes (Other)
  Sender: FDA-Public Use
  Company Number: US-PFIZER INC-2014043427

PATIENT
  Age: 58 Year
  Sex: Male
  Weight: 79.37 kg

DRUGS (3)
  1. VARENICLINE TARTRATE [Suspect]
     Indication: SMOKING CESSATION THERAPY
     Dosage: 1 MG, 2X/DAY
     Dates: start: 20131111
  2. ADVAIR [Concomitant]
     Indication: EMPHYSEMA
     Dosage: 250, UNK
     Route: 055
  3. SPIRIVA [Concomitant]
     Indication: EMPHYSEMA
     Dosage: 18 UG, UNK
     Route: 055

REACTIONS (1)
  - Arterial disorder [Unknown]
